FAERS Safety Report 17861298 (Version 1)
Quarter: 2020Q2

REPORT INFORMATION
  Report Type: Spontaneous
  Country: US (occurrence: US)
  Receive Date: 20200604
  Receipt Date: 20200604
  Transmission Date: 20200714
  Serious: No
  Sender: FDA-Public Use
  Company Number: US-HARMONY BIOSCIENCES-2020HMY00179

PATIENT
  Age: 27 Year
  Sex: Female

DRUGS (3)
  1. WAKIX [Suspect]
     Active Substance: PITOLISANT HYDROCHLORIDE
     Indication: NARCOLEPSY
     Dosage: UNK, 1X/DAY
     Dates: start: 20200214, end: 20200214
  2. UNSPECIFIED ALLERGY MEDICATION [Suspect]
     Active Substance: UNSPECIFIED INGREDIENT
     Dosage: UNK
     Dates: end: 2020
  3. WAKIX [Suspect]
     Active Substance: PITOLISANT HYDROCHLORIDE
     Indication: NARCOLEPSY
     Dosage: UNK
     Dates: start: 20200215, end: 2020

REACTIONS (5)
  - Photophobia [Unknown]
  - Headache [Unknown]
  - Insomnia [Unknown]
  - Hypersensitivity [Unknown]
  - Drug ineffective [Recovered/Resolved]

NARRATIVE: CASE EVENT DATE: 20200214
